FAERS Safety Report 4413179-2 (Version None)
Quarter: 2004Q3

REPORT INFORMATION
  Report Type: 
  Country: None (occurrence: None)
  Receive Date: 20040802
  Receipt Date: 20040721
  Transmission Date: 20050211
  Serious: Yes (Other)
  Sender: FDA-Public Use
  Company Number: CEL-2004-01423-SLO

PATIENT
  Age: 63 Year
  Sex: Male

DRUGS (3)
  1. ALBUTEROL SULFATE [Suspect]
     Indication: ASTHMA
     Dosage: 250MCG UNKNOWN
     Route: 042
  2. AMINOPHYLLINE [Suspect]
     Indication: ASTHMA
     Route: 042
  3. ALBUTEROL SULFATE [Suspect]
     Route: 065

REACTIONS (3)
  - BLOOD LACTIC ACID INCREASED [None]
  - METABOLIC ACIDOSIS [None]
  - RESPIRATORY ARREST [None]
